FAERS Safety Report 5321314-7 (Version None)
Quarter: 2007Q2

REPORT INFORMATION
  Report Type: 
  Country: None (occurrence: None)
  Receive Date: 20070510
  Receipt Date: 20070508
  Transmission Date: 20071010
  Serious: Yes (Hospitalization)
  Sender: FDA-Public Use
  Company Number: FR-BRISTOL-MYERS SQUIBB COMPANY-13771464

PATIENT
  Age: 27 Year
  Sex: Female

DRUGS (1)
  1. ARIPIPRAZOLE [Suspect]
     Indication: OBSESSIVE-COMPULSIVE DISORDER

REACTIONS (1)
  - OBSESSIVE-COMPULSIVE DISORDER [None]
